FAERS Safety Report 17684781 (Version 1)
Quarter: 2020Q2

REPORT INFORMATION
  Report Type: Spontaneous
  Country: US (occurrence: US)
  Receive Date: 20200417
  Receipt Date: 20200417
  Transmission Date: 20200714
  Serious: Yes (Death)
  Sender: FDA-Public Use
  Company Number: None

PATIENT
  Age: 75 Year
  Sex: Male
  Weight: 121 kg

DRUGS (2)
  1. APIXABAN (APIXABAN 5MG TAB) [Suspect]
     Active Substance: APIXABAN
     Indication: ATRIAL FIBRILLATION
     Route: 048
     Dates: start: 20171203, end: 20190721
  2. APIXABAN (APIXABAN 5MG TAB) [Suspect]
     Active Substance: APIXABAN
     Indication: STENT PLACEMENT
     Dates: start: 20120306, end: 20190725

REACTIONS (5)
  - Pneumatosis [None]
  - Sepsis [None]
  - Dizziness [None]
  - Gastric haemorrhage [None]
  - General physical health deterioration [None]

NARRATIVE: CASE EVENT DATE: 20190721
